FAERS Safety Report 10301802 (Version 2)
Quarter: 2014Q3

REPORT INFORMATION
  Report Type: Spontaneous
  Country: US (occurrence: US)
  Receive Date: 20140714
  Receipt Date: 20140714
  Transmission Date: 20150326
  Serious: Yes (Other)
  Sender: FDA-Public Use
  Company Number: PHHY2014US079561

PATIENT
  Sex: Female
  Weight: 68.27 kg

DRUGS (14)
  1. BACLOFEN INTRATHECAL [Suspect]
     Active Substance: BACLOFEN
     Dosage: 195.7 UG, DAILY (1100UG/ML) (INCREASED FROM 174.8MCG/DAY)
     Route: 037
     Dates: start: 20140305
  2. COZAAR [Suspect]
     Active Substance: LOSARTAN POTASSIUM
     Dosage: 100 MG, DAILY
  3. METFORMIN [Suspect]
     Active Substance: METFORMIN HYDROCHLORIDE
     Dosage: 1000 MG, BID
  4. TENORMIN [Suspect]
     Active Substance: ATENOLOL
     Dosage: 25 MG, DAILY
  5. ALPHA LIPOIC ACID [Suspect]
     Active Substance: .ALPHA.-LIPOIC ACID
     Dosage: 300 MG, TID
  6. BACLOFEN INTRATHECAL [Suspect]
     Active Substance: BACLOFEN
     Indication: MUSCLE SPASTICITY
     Dosage: 74.95 UG, DAILY (500UG/ML)
     Route: 037
     Dates: start: 20110411
  7. VALIUM [Suspect]
     Active Substance: DIAZEPAM
     Dosage: 5 MG, Q8H
     Dates: start: 20140620
  8. COQ10 [Suspect]
     Active Substance: UBIDECARENONE
     Dosage: 200 MG, BID
  9. CHROMIUM [Suspect]
     Active Substance: CHROMIC CHLORIDE\CHROMIUM
     Dosage: 200 UG, DAILY
  10. BACLOFEN INTRATHECAL [Suspect]
     Active Substance: BACLOFEN
     Dosage: 25 UG, UNK
  11. ACETYLSALICYLIC ACID [Suspect]
     Active Substance: ASPIRIN
     Dosage: 81 MG, DAILY
  12. BACLOFEN INTRATHECAL [Suspect]
     Active Substance: BACLOFEN
     Dosage: REDUCED THE DOSE FROM 116 TO 100UG/DAY
     Route: 037
     Dates: start: 20110725
  13. OMEGA-3 FATTY ACIDS [Suspect]
     Active Substance: OMEGA-3 FATTY ACIDS
     Dosage: UNK UKN, TID
  14. MULTI-VIT [Suspect]
     Active Substance: VITAMINS
     Dosage: 1 DF, DAILY

REACTIONS (38)
  - Post stroke depression [Unknown]
  - Paraesthesia [Unknown]
  - Decreased appetite [Unknown]
  - Cerebrovascular accident [Unknown]
  - Dystonia [Unknown]
  - Bursitis [Unknown]
  - Joint contracture [Unknown]
  - Constipation [Unknown]
  - Neck pain [Unknown]
  - Musculoskeletal stiffness [Unknown]
  - No therapeutic response [Unknown]
  - Fall [Unknown]
  - Abdominal discomfort [Unknown]
  - Pollakiuria [Unknown]
  - Myalgia [Unknown]
  - Muscle tightness [Unknown]
  - Hip fracture [Unknown]
  - Performance status decreased [Unknown]
  - Hypoaesthesia [Unknown]
  - Gait disturbance [Unknown]
  - Therapeutic response changed [Unknown]
  - Dry skin [Unknown]
  - Tendonitis [Unknown]
  - Pain [Unknown]
  - Implant site pain [Unknown]
  - Musculoskeletal pain [Unknown]
  - Muscle spasms [Unknown]
  - Periarthritis [Unknown]
  - Laboratory test abnormal [Unknown]
  - Joint stiffness [Unknown]
  - Vision blurred [Unknown]
  - Asthenia [Unknown]
  - Hemiparesis [Unknown]
  - Limb discomfort [Unknown]
  - Thirst [Unknown]
  - Arthralgia [Unknown]
  - Muscular weakness [Unknown]
  - Discomfort [Unknown]
